FAERS Safety Report 26052633 (Version 1)
Quarter: 2025Q4

REPORT INFORMATION
  Report Type: Spontaneous
  Country: US (occurrence: None)
  Receive Date: 20251117
  Receipt Date: 20251117
  Transmission Date: 20260117
  Serious: Yes (Other)
  Sender: BANNER
  Company Number: US-PTA-006381

PATIENT
  Age: 87 Year
  Sex: Female

DRUGS (3)
  1. NAPROXEN [Suspect]
     Active Substance: NAPROXEN
     Indication: Pain
     Route: 048
     Dates: start: 20251105, end: 20251105
  2. HYDROCHLOROTHIAZIDE [Concomitant]
     Active Substance: HYDROCHLOROTHIAZIDE
  3. LOSARTAN [Concomitant]
     Active Substance: LOSARTAN

REACTIONS (1)
  - Foreign body in throat [Recovered/Resolved]

NARRATIVE: CASE EVENT DATE: 20251105
